FAERS Safety Report 7604307-6 (Version None)
Quarter: 2011Q3

REPORT INFORMATION
  Report Type: 
  Country: None (occurrence: None)
  Receive Date: 20110712
  Receipt Date: 20110629
  Transmission Date: 20111222
  Serious: Yes (Other)
  Sender: FDA-Public Use
  Company Number: PHHY2011JP58344

PATIENT
  Sex: Male
  Weight: 42 kg

DRUGS (5)
  1. NEORAL [Concomitant]
     Indication: APLASTIC ANAEMIA
     Dosage: 150 MG, UNK
     Route: 048
     Dates: start: 20040511, end: 20101016
  2. EXJADE [Suspect]
     Indication: IRON OVERLOAD
     Dosage: 750 MG, UNK
     Route: 048
     Dates: start: 20100105, end: 20100706
  3. RED CELLS MAP [Concomitant]
     Dosage: 2 U, TWICE EVERY WEEK
     Dates: start: 20100707, end: 20101009
  4. EXJADE [Suspect]
     Dosage: 750 MG, UNK
     Route: 048
     Dates: start: 20100707, end: 20101009
  5. RED CELLS MAP [Concomitant]
     Dosage: 2 U, EVERY WEEK
     Dates: start: 20100105, end: 20100706

REACTIONS (2)
  - DEMENTIA [None]
  - CONCOMITANT DISEASE PROGRESSION [None]
